FAERS Safety Report 6861089-3 (Version None)
Quarter: 2010Q3

REPORT INFORMATION
  Report Type: 
  Country: None (occurrence: None)
  Receive Date: 20100720
  Receipt Date: 20100712
  Transmission Date: 20110219
  Serious: Yes (Death, Hospitalization)
  Sender: FDA-Public Use
  Company Number: FR-SANOFI-AVENTIS-2010SA040229

PATIENT
  Age: 54 Year
  Sex: Female

DRUGS (4)
  1. GLYBURIDE [Suspect]
     Indication: DIABETES MELLITUS
     Route: 048
     Dates: end: 20091028
  2. ENALAPRIL MALEATE [Suspect]
     Route: 048
     Dates: end: 20091028
  3. METFORMIN HCL [Suspect]
     Indication: DIABETES MELLITUS
     Route: 048
     Dates: end: 20091028
  4. PRAVASTATIN [Suspect]
     Route: 048
     Dates: end: 20091028

REACTIONS (8)
  - BLOOD BICARBONATE DECREASED [None]
  - BLOOD PH DECREASED [None]
  - BLOOD PRESSURE IMMEASURABLE [None]
  - CARDIAC ARREST [None]
  - CARDIO-RESPIRATORY ARREST [None]
  - HYPOGLYCAEMIC COMA [None]
  - LACTIC ACIDOSIS [None]
  - MYDRIASIS [None]
